FAERS Safety Report 19694741 (Version 2)
Quarter: 2021Q4

REPORT INFORMATION
  Report Type: Report from Study
  Country: US (occurrence: US)
  Receive Date: 20210812
  Receipt Date: 20211025
  Transmission Date: 20220304
  Serious: No
  Sender: FDA-Public Use
  Company Number: NVSC2021US173033

PATIENT

DRUGS (1)
  1. COSENTYX [Suspect]
     Active Substance: SECUKINUMAB
     Indication: Psoriasis
     Dosage: 300 MG
     Route: 054

REACTIONS (4)
  - Arthritis [Unknown]
  - Gait disturbance [Unknown]
  - Psoriasis [Unknown]
  - Incorrect route of product administration [Unknown]
